FAERS Safety Report 17078844 (Version 2)
Quarter: 2020Q4

REPORT INFORMATION
  Report Type: Spontaneous
  Country: US (occurrence: US)
  Receive Date: 20191127
  Receipt Date: 20201123
  Transmission Date: 20210113
  Serious: No
  Sender: FDA-Public Use
  Company Number: US-AUROBINDO-AUR-APL-2019-053234

PATIENT
  Age: 88 Year
  Sex: Female

DRUGS (3)
  1. LOSARTAN POTASSIUM TABLETS USP 50MG [Suspect]
     Active Substance: LOSARTAN POTASSIUM
     Indication: BLOOD PRESSURE MEASUREMENT
     Dosage: 1 DOSAGE FORM, DAILY (1 TABLET PER DAY)
     Route: 065
     Dates: start: 201905
  2. LUTEIN [Concomitant]
     Active Substance: LUTEIN
     Indication: EYE DISORDER
     Dosage: UNK
     Route: 065
  3. ASPIRIN. [Concomitant]
     Active Substance: ASPIRIN
     Indication: EYE DISORDER
     Dosage: UNK
     Route: 065

REACTIONS (6)
  - Nervousness [Recovering/Resolving]
  - Blood pressure increased [Recovering/Resolving]
  - Feeling jittery [Recovering/Resolving]
  - Drug hypersensitivity [Recovering/Resolving]
  - Muscle rigidity [Recovering/Resolving]
  - Hypotension [Recovering/Resolving]
